FAERS Safety Report 8573480-8 (Version None)
Quarter: 2012Q3

REPORT INFORMATION
  Report Type: 
  Country: None (occurrence: None)
  Receive Date: 20120806
  Receipt Date: 20120731
  Transmission Date: 20120928
  Serious: Yes (Death)
  Sender: FDA-Public Use
  Company Number: JP-ELI_LILLY_AND_COMPANY-JP201207007814

PATIENT
  Sex: Male

DRUGS (2)
  1. ADCIRCA [Suspect]
     Indication: PULMONARY HYPERTENSION
     Dosage: 40 MG, UNK
     Route: 048
  2. TRACLEER [Concomitant]
     Indication: PULMONARY HYPERTENSION
     Route: 048

REACTIONS (2)
  - PULMONARY HYPERTENSION [None]
  - OFF LABEL USE [None]
